FAERS Safety Report 19250250 (Version 1)
Quarter: 2021Q2

REPORT INFORMATION
  Report Type: Spontaneous
  Country: US (occurrence: US)
  Receive Date: 20210513
  Receipt Date: 20210513
  Transmission Date: 20210717
  Serious: No
  Sender: FDA-Public Use
  Company Number: US-STRONGBRIDGE BIOPHARMA-2021-STR-000162

PATIENT
  Age: 56 Year
  Sex: Male

DRUGS (1)
  1. KEVEYIS [Suspect]
     Active Substance: DICHLORPHENAMIDE
     Indication: FAMILIAL PERIODIC PARALYSIS
     Dosage: 100 MG, BID
     Route: 048
     Dates: start: 20181129

REACTIONS (3)
  - Disease recurrence [Unknown]
  - Product dose omission issue [Unknown]
  - Influenza [Unknown]

NARRATIVE: CASE EVENT DATE: 20210402
